FAERS Safety Report 8402468-2 (Version None)
Quarter: 2012Q2

REPORT INFORMATION
  Report Type: 
  Country: None (occurrence: None)
  Receive Date: 20120601
  Receipt Date: 20120529
  Transmission Date: 20120825
  Serious: Yes (Death, Hospitalization)
  Sender: FDA-Public Use
  Company Number: US-SANOFI-AVENTIS-2012SA026168

PATIENT
  Age: 64 Year
  Sex: Male
  Weight: 80.74 kg

DRUGS (11)
  1. TAXOTERE [Suspect]
     Route: 041
     Dates: start: 20120214, end: 20120214
  2. TAMSULOSIN HYDROCHLORIDE [Concomitant]
     Indication: MICTURITION DISORDER
     Route: 048
     Dates: start: 20120104, end: 20120401
  3. TAXOTERE [Suspect]
     Route: 041
     Dates: start: 20120306, end: 20120306
  4. TAXOTERE [Suspect]
     Route: 041
     Dates: start: 20120119, end: 20120119
  5. TAXOTERE [Suspect]
     Route: 041
     Dates: start: 20111201, end: 20111201
  6. PREDNISONE TAB [Concomitant]
     Route: 048
     Dates: start: 20120327, end: 20120327
  7. TAXOTERE [Suspect]
     Route: 041
     Dates: start: 20111201, end: 20111201
  8. DEXAMETHASONE [Concomitant]
  9. TAXOTERE [Suspect]
     Route: 041
     Dates: start: 20111119, end: 20111119
  10. FILGRASTIM [Concomitant]
     Dosage: DOSE:480 MICROGRAM(S)/MILLILITRE
     Dates: start: 20120403, end: 20120403
  11. TAXOTERE [Suspect]
     Route: 041
     Dates: start: 20120327, end: 20120327

REACTIONS (3)
  - RESPIRATORY FAILURE [None]
  - DYSPNOEA [None]
  - INTERSTITIAL LUNG DISEASE [None]
